FAERS Safety Report 7776959-1 (Version None)
Quarter: 2011Q3

REPORT INFORMATION
  Report Type: 
  Country: None (occurrence: None)
  Receive Date: 20110926
  Receipt Date: 20110913
  Transmission Date: 20111222
  Serious: No
  Sender: FDA-Public Use
  Company Number: US-B.I. PHARMACEUTICALS,INC./RIDGEFIELD-2011-BP-22141BP

PATIENT
  Sex: Female

DRUGS (7)
  1. PRADAXA [Suspect]
     Indication: ATRIAL FIBRILLATION
     Dosage: 300 MG
     Route: 048
     Dates: start: 20110801
  2. XALATAN [Concomitant]
     Indication: GLAUCOMA
     Dates: start: 20060101
  3. GLUCOSAMINE [Concomitant]
     Indication: ROUTINE HEALTH MAINTENANCE
     Dates: start: 20070101
  4. LAMISIL [Suspect]
     Indication: FUNGAL INFECTION
     Dates: start: 20110801, end: 20110910
  5. SOTALOL HCL [Concomitant]
     Indication: ATRIAL FIBRILLATION
     Dates: start: 20050101
  6. ALPRAZOLAM [Concomitant]
     Indication: GLAUCOMA
     Dosage: 62.5 MG
     Route: 048
     Dates: start: 19850101
  7. SYNTHROID [Concomitant]
     Indication: HYPOTHYROIDISM
     Dates: start: 19700101

REACTIONS (5)
  - URTICARIA [None]
  - PRURITUS [None]
  - DIARRHOEA [None]
  - OESOPHAGEAL PAIN [None]
  - RASH [None]
